FAERS Safety Report 7733380-X (Version None)
Quarter: 2011Q3

REPORT INFORMATION
  Report Type: 
  Country: None (occurrence: None)
  Receive Date: 20110907
  Receipt Date: 20110829
  Transmission Date: 20111222
  Serious: Yes (Other)
  Sender: FDA-Public Use
  Company Number: US-BAYER-2011-080028

PATIENT
  Sex: Female

DRUGS (2)
  1. MIRENA [Suspect]
     Dosage: UNK
     Dates: start: 20110809
  2. WEIGHT LOSS MEDICATION [Concomitant]

REACTIONS (4)
  - DEVICE EXPULSION [None]
  - METRORRHAGIA [None]
  - VAGINAL HAEMORRHAGE [None]
  - MENSTRUAL DISORDER [None]
